FAERS Safety Report 8087943-5 (Version None)
Quarter: 2012Q1

REPORT INFORMATION
  Report Type: 
  Country: None (occurrence: None)
  Receive Date: 20120130
  Receipt Date: 20120124
  Transmission Date: 20120608
  Serious: Yes (Life-Threatening, Hospitalization)
  Sender: FDA-Public Use
  Company Number: NL-ASTRAZENECA-2012SE05060

PATIENT
  Age: 45 Year
  Sex: Male
  Weight: 88 kg

DRUGS (2)
  1. METOPROLOL SUCCINATE [Suspect]
     Indication: ARRHYTHMIA
     Route: 048
     Dates: start: 20050615, end: 20050615
  2. TAMBOCOR [Suspect]
     Indication: ARRHYTHMIA
     Dates: start: 20050615, end: 20050615

REACTIONS (2)
  - HEPATIC FUNCTION ABNORMAL [None]
  - CARDIAC ARREST [None]
